FAERS Safety Report 5902651-1 (Version None)
Quarter: 2008Q3

REPORT INFORMATION
  Report Type: 
  Country: None (occurrence: None)
  Receive Date: 20080926
  Receipt Date: 20080915
  Transmission Date: 20090109
  Serious: Yes (Other)
  Sender: FDA-Public Use
  Company Number: CHNY2008BR03263

PATIENT
  Age: 35 Year
  Sex: Male
  Weight: 68.5 kg

DRUGS (2)
  1. LAMISIL [Suspect]
     Indication: FUNGAL INFECTION
     Dosage: BID, TOPICAL
     Route: 061
  2. UNIZOL (FLUCONAZOLE) [Concomitant]

REACTIONS (4)
  - DRUG EFFECT DECREASED [None]
  - OFF LABEL USE [None]
  - PAPILLOMA VIRAL INFECTION [None]
  - THERAPEUTIC RESPONSE DELAYED [None]
